FAERS Safety Report 10689960 (Version 1)
Quarter: 2015Q1

REPORT INFORMATION
  Report Type: Spontaneous
  Country: US (occurrence: None)
  Receive Date: 20150102
  Receipt Date: 20150102
  Transmission Date: 20150720
  Serious: Yes (Hospitalization)
  Sender: FDA-Public Use
  Company Number: None

PATIENT
  Age: 63 Year
  Sex: Male
  Weight: 75.3 kg

DRUGS (6)
  1. FERROUS SULFATE [Concomitant]
     Active Substance: FERROUS SULFATE\FERROUS SULFATE, DRIED
  2. DEMECLOCYCLINE [Suspect]
     Active Substance: DEMECLOCYCLINE
     Indication: HYPONATRAEMIA
     Route: 048
     Dates: start: 20140904, end: 20140923
  3. CLOPIDOGREL [Concomitant]
     Active Substance: CLOPIDOGREL BISULFATE
  4. DONEPAZIL [Concomitant]
  5. OMEPRAZOLE. [Concomitant]
     Active Substance: OMEPRAZOLE
  6. ARIPIPRAZOLE. [Concomitant]
     Active Substance: ARIPIPRAZOLE

REACTIONS (3)
  - Neutrophil count decreased [None]
  - Hyponatraemia [None]
  - Hypotension [None]

NARRATIVE: CASE EVENT DATE: 20140923
